FAERS Safety Report 5851861-0 (Version None)
Quarter: 2008Q3

REPORT INFORMATION
  Report Type: 
  Country: None (occurrence: None)
  Receive Date: 20080820
  Receipt Date: 20080811
  Transmission Date: 20090109
  Serious: Yes (Other)
  Sender: FDA-Public Use
  Company Number: US-ALLERGAN-0810183US

PATIENT

DRUGS (1)
  1. BOTULINUM TOXIN TYPE A [Suspect]
     Indication: SKIN DISORDER
     Dosage: TWO OR THREE SESSIONS
     Route: 030

REACTIONS (3)
  - INTENTIONAL DRUG MISUSE [None]
  - MUSCULAR WEAKNESS [None]
  - WRONG TECHNIQUE IN DRUG USAGE PROCESS [None]
